FAERS Safety Report 13649939 (Version 1)
Quarter: 2017Q2

REPORT INFORMATION
  Report Type: Other
  Country: DE (occurrence: DE)
  Receive Date: 20170614
  Receipt Date: 20170614
  Transmission Date: 20170830
  Serious: Yes (Hospitalization)
  Sender: FDA-Public Use
  Company Number: DE-LUPIN PHARMACEUTICALS INC.-2017-02649

PATIENT

DRUGS (15)
  1. METHADONE [Suspect]
     Active Substance: METHADONE HYDROCHLORIDE
     Dosage: 2 ML, UNK
     Route: 048
     Dates: start: 20150619
  2. METHADONE [Suspect]
     Active Substance: METHADONE HYDROCHLORIDE
     Dosage: 1 ML, UNK
     Route: 048
     Dates: start: 20150622
  3. KEPPRA [Concomitant]
     Active Substance: LEVETIRACETAM
     Indication: PRODUCT USED FOR UNKNOWN INDICATION
     Dosage: 1000 MG, QD
     Route: 048
     Dates: start: 20150529, end: 20150607
  4. KEPPRA [Concomitant]
     Active Substance: LEVETIRACETAM
     Dosage: 250 MG, QD
     Route: 048
  5. METHADONE [Suspect]
     Active Substance: METHADONE HYDROCHLORIDE
     Dosage: 3 ML, UNK
     Route: 048
     Dates: start: 20150618
  6. MEDIKINET                          /00083802/ [Concomitant]
     Active Substance: METHYLPHENIDATE
     Dosage: 40 MG, QD
     Route: 048
     Dates: start: 20150612
  7. METHADONE [Suspect]
     Active Substance: METHADONE HYDROCHLORIDE
     Dosage: 4 ML, UNK
     Route: 048
     Dates: start: 20150617
  8. KEPPRA [Concomitant]
     Active Substance: LEVETIRACETAM
     Dosage: 500 MG, QD
     Route: 048
     Dates: start: 20150609
  9. QUETIAPINE. [Suspect]
     Active Substance: QUETIAPINE
     Indication: PRODUCT USED FOR UNKNOWN INDICATION
     Dosage: 25 - 50 MG
     Route: 048
     Dates: start: 20150607, end: 20150610
  10. METHADONE [Suspect]
     Active Substance: METHADONE HYDROCHLORIDE
     Dosage: 1.5 ML, UNK
     Route: 048
     Dates: start: 20150620, end: 20150621
  11. METHADONE [Suspect]
     Active Substance: METHADONE HYDROCHLORIDE
     Dosage: 6 ML, UNK
     Route: 048
     Dates: start: 20150530, end: 20150615
  12. METHADONE [Suspect]
     Active Substance: METHADONE HYDROCHLORIDE
     Dosage: 5 ML, UNK
     Route: 048
     Dates: start: 20150616
  13. MEDIKINET                          /00083802/ [Concomitant]
     Active Substance: METHYLPHENIDATE
     Indication: PRODUCT USED FOR UNKNOWN INDICATION
     Dosage: 20 MG, QD
     Route: 048
     Dates: start: 20150608, end: 20150611
  14. KEPPRA [Concomitant]
     Active Substance: LEVETIRACETAM
     Dosage: 750 MG, QD
     Route: 048
     Dates: start: 20150608
  15. METHADONE [Suspect]
     Active Substance: METHADONE HYDROCHLORIDE
     Indication: PRODUCT USED FOR UNKNOWN INDICATION
     Dosage: 4 ML, UNK
     Route: 048
     Dates: start: 20150529

REACTIONS (2)
  - Blood prolactin increased [Recovering/Resolving]
  - Galactorrhoea [Recovering/Resolving]

NARRATIVE: CASE EVENT DATE: 20150611
